FAERS Safety Report 13788786 (Version 2)
Quarter: 2018Q4

REPORT INFORMATION
  Report Type: Spontaneous
  Country: US (occurrence: US)
  Receive Date: 20170725
  Receipt Date: 20181120
  Transmission Date: 20190204
  Serious: No
  Sender: FDA-Public Use
  Company Number: US-JNJFOC-20170712284

PATIENT
  Age: 73 Year
  Sex: Female
  Weight: 60 kg

DRUGS (8)
  1. ATORVASTATIN [Concomitant]
     Active Substance: ATORVASTATIN
  2. OMEPRAZOLE. [Concomitant]
     Active Substance: OMEPRAZOLE
  3. IMBRUVICA [Suspect]
     Active Substance: IBRUTINIB
     Indication: HYPOGAMMAGLOBULINAEMIA
     Route: 048
     Dates: start: 20160913, end: 20170619
  4. IMBRUVICA [Suspect]
     Active Substance: IBRUTINIB
     Indication: HYPOGAMMAGLOBULINAEMIA
     Route: 048
     Dates: start: 20180207
  5. BISOPROLOL [Concomitant]
     Active Substance: BISOPROLOL
  6. LEVOTHYROXINE. [Concomitant]
     Active Substance: LEVOTHYROXINE
  7. IMBRUVICA [Suspect]
     Active Substance: IBRUTINIB
     Indication: HYPOGAMMAGLOBULINAEMIA
     Route: 048
     Dates: start: 20160913, end: 201801
  8. CALCIUM VITAMIN D3 [Concomitant]

REACTIONS (5)
  - Product use in unapproved indication [Unknown]
  - Red blood cell count decreased [Not Recovered/Not Resolved]
  - White blood cell count decreased [Unknown]
  - Off label use [Unknown]
  - Arthralgia [Not Recovered/Not Resolved]

NARRATIVE: CASE EVENT DATE: 20160913
